FAERS Safety Report 5859900-8 (Version None)
Quarter: 2008Q3

REPORT INFORMATION
  Report Type: 
  Country: None (occurrence: None)
  Receive Date: 20080827
  Receipt Date: 20080822
  Transmission Date: 20090109
  Serious: Yes (Other)
  Sender: FDA-Public Use
  Company Number: IT-AVENTIS-200814385EU

PATIENT
  Age: 82 Year
  Sex: Female

DRUGS (10)
  1. LASIX [Suspect]
     Route: 048
  2. LASIX [Suspect]
     Dosage: DOSE: UNK
     Route: 042
  3. CEBION                             /00008001/ [Concomitant]
  4. KCL-RETARD [Concomitant]
  5. EUTIROX                            /00068001/ [Concomitant]
  6. ALBUMINA HUMANA [Concomitant]
     Dosage: DOSE: 20 %
  7. ENOXAPARIN SODIUM [Concomitant]
  8. ROCEPHIN [Concomitant]
  9. CALCIUM [Concomitant]
  10. CORDARONE [Concomitant]

REACTIONS (3)
  - DRUG INEFFECTIVE [None]
  - HYPOALBUMINAEMIA [None]
  - OLIGURIA [None]
